FAERS Safety Report 9501773 (Version 2)
Quarter: 2013Q3

REPORT INFORMATION
  Report Type: Report from Study
  Country: CA (occurrence: CA)
  Receive Date: 20130905
  Receipt Date: 20130905
  Transmission Date: 20140515
  Serious: Yes (Death, Hospitalization)
  Sender: FDA-Public Use
  Company Number: PHHY2012CA087135

PATIENT
  Age: 64 Year
  Sex: Male

DRUGS (1)
  1. SANDOSTATIN LAR [Suspect]
     Indication: LUNG NEOPLASM MALIGNANT
     Dosage: 60 MG, EVERY 4 WEKS
     Route: 030
     Dates: start: 20120802, end: 20130805

REACTIONS (9)
  - General physical health deterioration [Fatal]
  - Intestinal obstruction [Unknown]
  - Abdominal pain [Recovering/Resolving]
  - Blood pressure increased [Unknown]
  - Hypotension [Unknown]
  - Weight decreased [Unknown]
  - Ascites [Unknown]
  - Heart rate increased [Unknown]
  - Fatigue [Unknown]
